FAERS Safety Report 12503522 (Version 1)
Quarter: 2016Q2

REPORT INFORMATION
  Report Type: Spontaneous
  Country: GB (occurrence: GB)
  Receive Date: 20160628
  Receipt Date: 20160628
  Transmission Date: 20160815
  Serious: Yes (Hospitalization, Other)
  Sender: FDA-Public Use
  Company Number: GB-TEVA-670019ACC

PATIENT
  Age: 55 Year
  Sex: Male
  Weight: 95 kg

DRUGS (8)
  1. ASPIRIN. [Concomitant]
     Active Substance: ASPIRIN
  2. COCODAMOL [Concomitant]
     Active Substance: ACETAMINOPHEN\CODEINE PHOSPHATE
  3. LANSOPRAZOLE. [Concomitant]
     Active Substance: LANSOPRAZOLE
  4. OLANZAPINE. [Suspect]
     Active Substance: OLANZAPINE
     Dosage: 5MG ONCE DAILY USUAL DOSE
     Route: 048
  5. GABAPENTIN. [Concomitant]
     Active Substance: GABAPENTIN
  6. TIOTROPIUM [Concomitant]
     Active Substance: TIOTROPIUM
  7. TRAZODONE [Concomitant]
     Active Substance: TRAZODONE HYDROCHLORIDE
  8. ZOPICLONE [Concomitant]
     Active Substance: ZOPICLONE

REACTIONS (5)
  - Toxicity to various agents [Recovered/Resolved]
  - Depressed level of consciousness [Recovered/Resolved]
  - Electrocardiogram QT prolonged [Recovered/Resolved]
  - Hypotension [Recovered/Resolved]
  - Overdose [Recovered/Resolved]
